FAERS Safety Report 8580079 (Version 3)
Quarter: 2018Q2

REPORT INFORMATION
  Report Type: Spontaneous
  Country: JP (occurrence: JP)
  Receive Date: 20120525
  Receipt Date: 20180509
  Transmission Date: 20180711
  Serious: Yes (Death, Hospitalization)
  Sender: FDA-Public Use
  Company Number: JP-PFIZER INC-2012125051

PATIENT
  Age: 80 Year
  Sex: Female
  Weight: 55 kg

DRUGS (4)
  1. SUTENT [Suspect]
     Active Substance: SUNITINIB MALATE
     Dosage: 25 MG, 1X/DAY
     Route: 048
     Dates: start: 20120221
  2. SUTENT [Suspect]
     Active Substance: SUNITINIB MALATE
     Indication: RENAL CANCER
     Dosage: 37.5 MG, 1X/DAY
     Route: 048
     Dates: start: 20120214
  3. SUTENT [Suspect]
     Active Substance: SUNITINIB MALATE
     Dosage: 12.5 MG, 1X/DAY
     Route: 048
     Dates: start: 20120229
  4. SUTENT [Suspect]
     Active Substance: SUNITINIB MALATE
     Dosage: 12.5 MG, 1X/DAY
     Route: 048
     Dates: start: 20120404, end: 20120406

REACTIONS (4)
  - Aortic dissection [Fatal]
  - Platelet count decreased [Recovering/Resolving]
  - Fatigue [Unknown]
  - Decreased appetite [Unknown]

NARRATIVE: CASE EVENT DATE: 2012
